FAERS Safety Report 5442744-9 (Version None)
Quarter: 2007Q3

REPORT INFORMATION
  Report Type: 
  Country: None (occurrence: None)
  Receive Date: 20070904
  Receipt Date: 20070820
  Transmission Date: 20080115
  Serious: No
  Sender: FDA-Public Use
  Company Number: US-BOEHRINGER INGELHEIM PHARMACEUTICALS, INC.-2007-BP-18869BP

PATIENT
  Sex: Female

DRUGS (11)
  1. MIRAPEX [Suspect]
     Indication: MIGRAINE
     Route: 048
     Dates: start: 20070101
  2. MIRAPEX [Suspect]
     Route: 048
  3. PLENDIL [Concomitant]
     Indication: HYPERTENSION
  4. ZYPREXA [Concomitant]
     Indication: DEPRESSION
  5. TRIHEXYPHENIDYL HCL [Concomitant]
     Indication: DYSKINESIA
  6. PREMARIN [Concomitant]
     Indication: HORMONE REPLACEMENT THERAPY
  7. BAYER ENTERIC COATED ASPIRIN [Concomitant]
  8. CENTRUM SILVER [Concomitant]
  9. CLINDAMYCIN HCL [Concomitant]
     Indication: MITRAL VALVE PROLAPSE
  10. CLINDAMYCIN HCL [Concomitant]
     Indication: MITRAL VALVE INCOMPETENCE
  11. MAALOX FAST BLOCKER [Concomitant]
     Indication: GASTROOESOPHAGEAL REFLUX DISEASE

REACTIONS (2)
  - MIGRAINE [None]
  - MUSCLE SPASMS [None]
